FAERS Safety Report 4289391-2 (Version None)
Quarter: 2004Q1

REPORT INFORMATION
  Report Type: 
  Country: None (occurrence: None)
  Receive Date: 20040126
  Receipt Date: 20031023
  Transmission Date: 20041129
  Serious: No
  Sender: FDA-Public Use
  Company Number: USA030948325

PATIENT
  Age: 53 Year
  Sex: Female
  Weight: 43 kg

DRUGS (12)
  1. FORTEO [Suspect]
     Indication: OSTEOPOROSIS
     Dosage: 20 UG/DAY
     Dates: start: 20030923
  2. NEURONTIN [Concomitant]
  3. TENORMIN [Concomitant]
  4. PREVACID [Concomitant]
  5. BENTYL [Concomitant]
  6. ZOFRAN [Concomitant]
  7. SOMA [Concomitant]
  8. ADVAIR DISKUS 100/50 [Concomitant]
  9. CLIMARA [Concomitant]
  10. ALBUTEROL [Concomitant]
  11. CALCIUM AND VITAMIN D [Concomitant]
  12. DEMEROL [Concomitant]

REACTIONS (10)
  - CHILLS [None]
  - DIZZINESS [None]
  - FLUSHING [None]
  - HYPERHIDROSIS [None]
  - IMPAIRED DRIVING ABILITY [None]
  - INFLUENZA [None]
  - MALNUTRITION [None]
  - OXYGEN SATURATION DECREASED [None]
  - PRURITUS [None]
  - PYREXIA [None]
